FAERS Safety Report 24645007 (Version 1)
Quarter: 2024Q4

REPORT INFORMATION
  Report Type: Spontaneous
  Country: US (occurrence: US)
  Receive Date: 20241121
  Receipt Date: 20241121
  Transmission Date: 20250115
  Serious: No
  Sender: ALEXION PHARMACEUTICALS
  Company Number: US-AstraZeneca-CH-00751276A

PATIENT

DRUGS (4)
  1. WAINUA [Suspect]
     Active Substance: EPLONTERSEN
     Indication: Amyloidosis
  2. WAINUA [Suspect]
     Active Substance: EPLONTERSEN
  3. WAINUA [Suspect]
     Active Substance: EPLONTERSEN
  4. WAINUA [Suspect]
     Active Substance: EPLONTERSEN

REACTIONS (2)
  - Protein urine [Recovering/Resolving]
  - Vitamin A decreased [Recovering/Resolving]
